FAERS Safety Report 15990449 (Version 1)
Quarter: 2019Q1

REPORT INFORMATION
  Report Type: Spontaneous
  Country: US (occurrence: US)
  Receive Date: 20190127
  Receipt Date: 20190127
  Transmission Date: 20190418
  Serious: Yes (Hospitalization)
  Sender: FDA-Public Use
  Company Number: None

PATIENT
  Age: 64 Year
  Sex: Male

DRUGS (1)
  1. AMLODIPINE [Suspect]
     Active Substance: AMLODIPINE BESYLATE
     Indication: HYPERTENSION
     Route: 048
     Dates: start: 20180927, end: 20181119

REACTIONS (4)
  - Urticaria [None]
  - Diarrhoea [None]
  - Oedema peripheral [None]
  - Rash pruritic [None]

NARRATIVE: CASE EVENT DATE: 20181201
